FAERS Safety Report 18580776 (Version 1)
Quarter: 2020Q4

REPORT INFORMATION
  Report Type: Report from Study
  Country: CA (occurrence: CA)
  Receive Date: 20201204
  Receipt Date: 20201204
  Transmission Date: 20210114
  Serious: Yes (Death, Hospitalization)
  Sender: FDA-Public Use
  Company Number: CA-JNJFOC-20201127331

PATIENT
  Age: 83 Year
  Sex: Female
  Weight: 54 kg

DRUGS (1)
  1. STELARA [Suspect]
     Active Substance: USTEKINUMAB
     Indication: CROHN^S DISEASE
     Route: 058
     Dates: start: 20200407, end: 20201127

REACTIONS (4)
  - COVID-19 [Unknown]
  - Death [Fatal]
  - Fall [Unknown]
  - Multiple fractures [Unknown]

NARRATIVE: CASE EVENT DATE: 2020
